FAERS Safety Report 6932852-5 (Version None)
Quarter: 2010Q3

REPORT INFORMATION
  Report Type: 
  Country: None (occurrence: None)
  Receive Date: 20100819
  Receipt Date: 20100809
  Transmission Date: 20110219
  Serious: Yes (Other)
  Sender: FDA-Public Use
  Company Number: US-WATSON-2010-10751

PATIENT
  Sex: Female
  Weight: 88.435 kg

DRUGS (8)
  1. ALENDRONATE SODIUM [Suspect]
     Indication: OSTEOPOROSIS
     Dosage: 1 TAB 1/WEEK
     Route: 048
     Dates: start: 20060101
  2. ARIMIDEX [Concomitant]
     Indication: BREAST CANCER
  3. QVAR 40 [Concomitant]
     Indication: ASTHMA
  4. ALBUTEROL [Concomitant]
     Indication: ASTHMA
  5. LEVOTHYROXINE [Concomitant]
     Indication: HYPOTHYROIDISM
  6. XANAX [Concomitant]
     Indication: STRESS
  7. TRAZODONE HCL [Concomitant]
     Indication: SLEEP DISORDER
  8. ZETIA [Concomitant]
     Indication: HYPERCHOLESTEROLAEMIA

REACTIONS (5)
  - BALANCE DISORDER [None]
  - BREAST CANCER FEMALE [None]
  - DIZZINESS [None]
  - FLATULENCE [None]
  - RENAL FAILURE [None]
